FAERS Safety Report 4571205-4 (Version None)
Quarter: 2005Q1

REPORT INFORMATION
  Report Type: 
  Country: None (occurrence: None)
  Receive Date: 20050202
  Receipt Date: 20050117
  Transmission Date: 20050727
  Serious: Yes (Hospitalization)
  Sender: FDA-Public Use
  Company Number: B0365658A

PATIENT
  Age: 85 Year
  Sex: Male

DRUGS (6)
  1. DYAZIDE [Suspect]
  2. LISINOPRIL [Suspect]
  3. HYDROQUININE HYDROBROMIDE [Concomitant]
  4. CITALOPRAM [Concomitant]
  5. ASPIRIN [Concomitant]
  6. OMEPRAZOLE [Concomitant]

REACTIONS (6)
  - COMA [None]
  - DIARRHOEA [None]
  - FLUID INTAKE REDUCED [None]
  - GENERAL PHYSICAL HEALTH DETERIORATION [None]
  - HYPERKALAEMIA [None]
  - RENAL IMPAIRMENT [None]
